FAERS Safety Report 8690342 (Version 5)
Quarter: 2013Q1

REPORT INFORMATION
  Report Type: Spontaneous
  Country: US (occurrence: US)
  Receive Date: 20120727
  Receipt Date: 20130314
  Transmission Date: 20140127
  Serious: No
  Sender: FDA-Public Use
  Company Number: US-ASTRAZENECA-2012SE23760

PATIENT
  Age: 77 Year
  Sex: Female

DRUGS (2)
  1. SEROQUEL [Suspect]
     Dosage: TAKE AT DIFFERENT TIMES DURING THE NIGHT
     Route: 048
  2. SEROQUEL [Suspect]
     Route: 048

REACTIONS (9)
  - Hypoacusis [Unknown]
  - Visual acuity reduced [Unknown]
  - Malaise [Unknown]
  - Anxiety [Unknown]
  - Insomnia [Unknown]
  - Pain [Unknown]
  - Affect lability [Unknown]
  - Drug dose omission [Unknown]
  - Intercepted drug prescribing error [Unknown]
